FAERS Safety Report 9435675 (Version 2)
Quarter: 2013Q4

REPORT INFORMATION
  Report Type: Report from Study
  Country: CN (occurrence: CN)
  Receive Date: 20130801
  Receipt Date: 20131027
  Transmission Date: 20140711
  Serious: Yes (Hospitalization)
  Sender: FDA-Public Use
  Company Number: CN-US-EMD SERONO, INC.-7227065

PATIENT
  Sex: Female
  Weight: 35 kg

DRUGS (1)
  1. SAIZEN [Suspect]
     Indication: TURNER^S SYNDROME
     Dosage: SAIZEN DAILY INJECTION VOLUME 4IU

REACTIONS (3)
  - Urticaria [Unknown]
  - Injection site erythema [Unknown]
  - Drug ineffective [Unknown]
